FAERS Safety Report 8981519 (Version 2)
Quarter: 2012Q4

REPORT INFORMATION
  Report Type: Report from Study
  Country: US (occurrence: US)
  Receive Date: 20121221
  Receipt Date: 20121228
  Transmission Date: 20130627
  Serious: Yes (Hospitalization)
  Sender: FDA-Public Use
  Company Number: US-JNJFOC-20121207583

PATIENT
  Age: 76 Year
  Sex: Female

DRUGS (34)
  1. ACETAMINOPHEN [Suspect]
     Route: 065
  2. ACETAMINOPHEN [Suspect]
     Indication: PRODUCT USED FOR UNKNOWN INDICATION
     Route: 065
  3. ADVAIR [Concomitant]
     Route: 065
  4. ALBUTEROL [Concomitant]
     Route: 065
  5. ASPIRIN [Concomitant]
     Route: 065
  6. CARVEDILOL [Concomitant]
     Route: 065
  7. CLOPIDOGREL [Concomitant]
     Route: 065
  8. ESCITALOPRAM [Concomitant]
     Route: 065
  9. FLUTICASONE [Concomitant]
     Route: 065
  10. FUROSEMIDE [Concomitant]
     Route: 065
  11. LEVEMIR [Concomitant]
     Route: 065
  12. MYLANTA [Concomitant]
     Route: 065
  13. REFRESH [Concomitant]
     Route: 065
  14. OMEPRAZOLE [Concomitant]
     Route: 065
  15. OXYBUTYNIN [Concomitant]
     Route: 065
  16. VYTORIN [Concomitant]
     Route: 065
  17. BISACODYL [Concomitant]
     Route: 065
  18. CYCLOBENZAPRINE [Concomitant]
     Route: 065
  19. GABAPENTIN [Concomitant]
     Route: 065
  20. ISOSORBIDE [Concomitant]
     Route: 065
  21. LANSOPRAZOLE [Concomitant]
     Route: 065
  22. LIDODERM [Concomitant]
     Route: 065
  23. LOSARTAN [Concomitant]
     Route: 065
  24. METFORMIN [Concomitant]
     Route: 065
  25. COMPAZINE [Concomitant]
     Route: 065
  26. AMIODARONE [Concomitant]
     Route: 065
  27. LISINOPRIL [Concomitant]
     Route: 065
  28. RIVAROXABAN [Concomitant]
     Route: 065
  29. INSULIN [Concomitant]
     Route: 065
  30. LORAZEPAM [Concomitant]
     Route: 065
  31. METOPROLOL [Concomitant]
     Route: 065
  32. ROSUVASTATIN [Concomitant]
     Route: 065
  33. TEMAZEPAM [Concomitant]
     Route: 065
  34. TRAMADOL [Concomitant]
     Route: 065

REACTIONS (8)
  - Hypotension [Not Recovered/Not Resolved]
  - Metastases to liver [Unknown]
  - Hepatic mass [Not Recovered/Not Resolved]
  - Tachycardia [Not Recovered/Not Resolved]
  - Chest pain [Recovered/Resolved]
  - Dizziness [Not Recovered/Not Resolved]
  - Dyspnoea [Not Recovered/Not Resolved]
  - Decreased appetite [Not Recovered/Not Resolved]
